FAERS Safety Report 9704091 (Version 2)
Quarter: 2013Q4

REPORT INFORMATION
  Report Type: Spontaneous
  Country: US (occurrence: US)
  Receive Date: 20131122
  Receipt Date: 20131122
  Transmission Date: 20140711
  Serious: No
  Sender: FDA-Public Use
  Company Number: US-GLAXOSMITHKLINE-A0808681A

PATIENT
  Age: 42 Year
  Sex: Female

DRUGS (4)
  1. WELLBUTRIN SR [Suspect]
     Indication: DEPRESSION
     Dosage: 400MG PER DAY
     Route: 048
     Dates: start: 20090522
  2. SYNTHROID [Concomitant]
  3. CYMBALTA [Concomitant]
  4. TOPAMAX [Concomitant]

REACTIONS (5)
  - Weight increased [Unknown]
  - Agitation [Unknown]
  - Asthenia [Unknown]
  - Drug ineffective [Unknown]
  - Gastric disorder [Unknown]
